FAERS Safety Report 15347977 (Version 4)
Quarter: 2023Q1

REPORT INFORMATION
  Report Type: Spontaneous
  Country: US (occurrence: US)
  Receive Date: 20180904
  Receipt Date: 20230224
  Transmission Date: 20230418
  Serious: No
  Sender: FDA-Public Use
  Company Number: US-SUNOVION-2018SUN003299

PATIENT
  Sex: Female

DRUGS (7)
  1. LATUDA [Suspect]
     Active Substance: LURASIDONE HYDROCHLORIDE
     Indication: Bipolar disorder
     Dosage: 20 MG IN THE MORNING AND 80 MG AT NIGHT
     Route: 048
  2. LATUDA [Suspect]
     Active Substance: LURASIDONE HYDROCHLORIDE
     Dosage: 80 MG
     Route: 048
     Dates: start: 2018
  3. LATUDA [Suspect]
     Active Substance: LURASIDONE HYDROCHLORIDE
     Dosage: UNK
     Route: 048
  4. LATUDA [Suspect]
     Active Substance: LURASIDONE HYDROCHLORIDE
     Dosage: 80 MG (TWO TABLETS), HS
     Route: 048
  5. PERPHENAZINE [Suspect]
     Active Substance: PERPHENAZINE
     Dosage: 4 MG, ONE TABLET IN THE MORNING AND TWO IN THE EVENING
     Route: 065
  6. CLOZARIL [Suspect]
     Active Substance: CLOZAPINE
     Dosage: 80 MG
     Route: 065
  7. INVEGA [Concomitant]
     Active Substance: PALIPERIDONE
     Dosage: UNKNOWN
     Route: 065

REACTIONS (14)
  - Cerebral disorder [Unknown]
  - Inner ear disorder [Unknown]
  - Tic [Unknown]
  - Drug ineffective [Unknown]
  - Drug hypersensitivity [Unknown]
  - Restless legs syndrome [Unknown]
  - Bipolar disorder [Unknown]
  - Feeling abnormal [Unknown]
  - Urticaria [Unknown]
  - Somnolence [Unknown]
  - Vision blurred [Unknown]
  - Restlessness [Unknown]
  - Dizziness [Unknown]
  - Off label use [Unknown]
